FAERS Safety Report 7478898-2 (Version None)
Quarter: 2011Q2

REPORT INFORMATION
  Report Type: 
  Country: None (occurrence: None)
  Receive Date: 20110505
  Receipt Date: 20110419
  Transmission Date: 20111010
  Serious: Yes (Other)
  Sender: FDA-Public Use
  Company Number: FK201100800

PATIENT
  Age: 90 Year
  Sex: Male

DRUGS (6)
  1. CYCLOPHOSPHAMIDE [Suspect]
     Indication: HODGKIN'S DISEASE
  2. PROCARBAZINE HYDROCHLORIDE [Suspect]
     Indication: HODGKIN'S DISEASE
  3. ADRIAMYCIN PFS [Suspect]
     Indication: HODGKIN'S DISEASE
  4. PREDNISOLONE [Suspect]
     Indication: HODGKIN'S DISEASE
  5. DACARBAZINE [Suspect]
     Indication: HODGKIN'S DISEASE
  6. VINBLASTINE SULFATE [Suspect]
     Indication: HODGKIN'S DISEASE

REACTIONS (5)
  - HODGKIN'S DISEASE [None]
  - DISEASE PROGRESSION [None]
  - HYPOCALCAEMIA [None]
  - MUSCULAR WEAKNESS [None]
  - HYPOMAGNESAEMIA [None]
